FAERS Safety Report 8554484-8 (Version None)
Quarter: 2012Q3

REPORT INFORMATION
  Report Type: 
  Country: None (occurrence: None)
  Receive Date: 20120731
  Receipt Date: 20120718
  Transmission Date: 20120928
  Serious: No
  Sender: FDA-Public Use
  Company Number: US-009507513-1207USA006701

PATIENT

DRUGS (1)
  1. CLARITIN-D [Suspect]
     Indication: PRODUCT USED FOR UNKNOWN INDICATION
     Dosage: 50 MG, ONCE

REACTIONS (4)
  - OVERDOSE [None]
  - LIVER INJURY [None]
  - ENERGY INCREASED [None]
  - FAECES DISCOLOURED [None]
